FAERS Safety Report 13833881 (Version 1)
Quarter: 2017Q3

REPORT INFORMATION
  Report Type: Report from Study
  Country: US (occurrence: US)
  Receive Date: 20170804
  Receipt Date: 20170804
  Transmission Date: 20171127
  Serious: No
  Sender: FDA-Public Use
  Company Number: PHHY2016US183547

PATIENT

DRUGS (1)
  1. NAPHCON A [Suspect]
     Active Substance: NAPHAZOLINE HYDROCHLORIDE\PHENIRAMINE MALEATE
     Indication: PRODUCT USED FOR UNKNOWN INDICATION
     Route: 065

REACTIONS (13)
  - Nasopharyngitis [Unknown]
  - Foreign body sensation in eyes [Unknown]
  - Hypersensitivity [Unknown]
  - Balance disorder [Unknown]
  - Respiratory tract infection [Unknown]
  - Dry eye [Unknown]
  - Eye irritation [Unknown]
  - Eye pain [Unknown]
  - Labyrinthitis [Unknown]
  - Sensitivity of teeth [Unknown]
  - Gastrooesophageal reflux disease [Unknown]
  - Influenza [Unknown]
  - Dyspepsia [Unknown]
